FAERS Safety Report 10511280 (Version 2)
Quarter: 2014Q4

REPORT INFORMATION
  Report Type: Spontaneous
  Country: GB (occurrence: GB)
  Receive Date: 20141010
  Receipt Date: 20141024
  Transmission Date: 20150528
  Serious: Yes (Other)
  Sender: FDA-Public Use
  Company Number: GB-PFIZER INC-2014273281

PATIENT
  Sex: Male

DRUGS (9)
  1. HYDROXYCARBAMIDE [Suspect]
     Active Substance: HYDROXYUREA
     Dosage: 2 G, EVERY 2 HOURS
  2. NILOTINIB [Suspect]
     Active Substance: NILOTINIB
     Dosage: 300 MG, 2X/DAY  (5 DOSES WERE GIVEN)
  3. RASBURICASE [Suspect]
     Active Substance: RASBURICASE
     Dosage: INCREASED
  4. TAZOCIN [Suspect]
     Active Substance: PIPERACILLIN SODIUM\TAZOBACTAM SODIUM
     Dosage: UNK
  5. PIPITAZ [Suspect]
     Active Substance: PIPERACILLIN SODIUM\TAZOBACTAM SODIUM
     Indication: PYREXIA
  6. RASBURICASE [Suspect]
     Active Substance: RASBURICASE
     Dosage: UNK
  7. HYDROXYCARBAMIDE [Suspect]
     Active Substance: HYDROXYUREA
     Dosage: 2 G, HOURLY
  8. MEROPENEM. [Suspect]
     Active Substance: MEROPENEM
     Dosage: UNK
  9. ENOXAPARIN [Suspect]
     Active Substance: ENOXAPARIN
     Dosage: UNK

REACTIONS (5)
  - Toxic epidermal necrolysis [Unknown]
  - Rash [Unknown]
  - Tumour lysis syndrome [Unknown]
  - Blister [Unknown]
  - Skin burning sensation [Unknown]

NARRATIVE: CASE EVENT DATE: 20140819
